FAERS Safety Report 14509647 (Version 1)
Quarter: 2018Q1

REPORT INFORMATION
  Report Type: Spontaneous
  Country: JP (occurrence: JP)
  Receive Date: 20180209
  Receipt Date: 20180209
  Transmission Date: 20180509
  Serious: Yes (Hospitalization)
  Sender: FDA-Public Use
  Company Number: JP-ELI_LILLY_AND_COMPANY-JP201801001896

PATIENT
  Age: 74 Year
  Sex: Male
  Weight: 51 kg

DRUGS (2)
  1. PACLITAXEL. [Suspect]
     Active Substance: PACLITAXEL
     Indication: GASTRIC CANCER
     Dosage: 80 MG, CYCLICAL
     Route: 042
     Dates: start: 20170517, end: 20171213
  2. CYRAMZA [Suspect]
     Active Substance: RAMUCIRUMAB
     Indication: GASTRIC CANCER
     Dosage: 360 MG, CYCLICAL
     Route: 041
     Dates: start: 20170517, end: 20171213

REACTIONS (3)
  - Gastrointestinal oedema [Recovered/Resolved]
  - Protein urine [Recovered/Resolved]
  - Diarrhoea [Unknown]

NARRATIVE: CASE EVENT DATE: 20171225
